FAERS Safety Report 4364672-2 (Version None)
Quarter: 2004Q2

REPORT INFORMATION
  Report Type: 
  Country: None (occurrence: None)
  Receive Date: 20040526
  Receipt Date: 20031029
  Transmission Date: 20050107
  Serious: Yes (Hospitalization)
  Sender: FDA-Public Use
  Company Number: A-USA2003-03439

PATIENT
  Age: 63 Year
  Sex: Female

DRUGS (13)
  1. FLOLAN [Suspect]
     Indication: PULMONARY HYPERTENSION
     Route: 042
     Dates: start: 20020429
  2. TRACLEER [Suspect]
     Indication: PULMONARY HYPERTENSION
     Route: 048
     Dates: start: 20030113, end: 20030212
  3. COUMADIN [Concomitant]
  4. DIGOXIN [Concomitant]
  5. AMBIEN [Concomitant]
  6. LASIX [Concomitant]
  7. FLOVENT [Concomitant]
  8. FLONASE [Concomitant]
  9. ALDACTONE [Concomitant]
  10. MAGNESIUM [Concomitant]
  11. IMODIUM [Concomitant]
  12. SEREVENT [Concomitant]
  13. PREVACID [Concomitant]

REACTIONS (12)
  - ABDOMINAL DISTENSION [None]
  - ANTINUCLEAR ANTIBODY POSITIVE [None]
  - DYSPNOEA [None]
  - FEELING HOT [None]
  - FLUSHING [None]
  - HEPATIC ENZYME INCREASED [None]
  - LOOSE STOOLS [None]
  - OEDEMA PERIPHERAL [None]
  - PAIN IN JAW [None]
  - PRURITUS [None]
  - PULMONARY OEDEMA [None]
  - RASH GENERALISED [None]
